FAERS Safety Report 22223317 (Version 1)
Quarter: 2023Q2

REPORT INFORMATION
  Report Type: Spontaneous
  Country: FR (occurrence: FR)
  Receive Date: 20230418
  Receipt Date: 20230418
  Transmission Date: 20230722
  Serious: Yes (Hospitalization)
  Sender: FDA-Public Use
  Company Number: None

PATIENT
  Age: 87 Year
  Sex: Female
  Weight: 49.6 kg

DRUGS (17)
  1. MIRTAZAPINE [Suspect]
     Active Substance: MIRTAZAPINE
     Indication: Product used for unknown indication
     Dosage: 15 MILLIGRAM, QD (1/4TH OF 15MG IN EVENING)
     Route: 048
     Dates: start: 20220813, end: 20220816
  2. MIRTAZAPINE [Suspect]
     Active Substance: MIRTAZAPINE
     Dosage: 15 MG, QD (IN THE EVENING)
     Route: 048
     Dates: start: 20220816, end: 20220824
  3. MIRTAZAPINE [Suspect]
     Active Substance: MIRTAZAPINE
     Dosage: 15 MILLIGRAM, QD
     Route: 048
     Dates: end: 202208
  4. MIANSERIN [Suspect]
     Active Substance: MIANSERIN
     Indication: Headache
     Dosage: UNK (NOT FILLED IN)
     Route: 048
     Dates: start: 20220813, end: 20220824
  5. BROMAZEPAM [Suspect]
     Active Substance: BROMAZEPAM
     Indication: Headache
     Dosage: 3 MG, QD,0-0-0-1 TABLET/DAY(AT BEDTIME)
     Route: 048
     Dates: start: 20220813, end: 20220824
  6. BROMAZEPAM [Suspect]
     Active Substance: BROMAZEPAM
     Dosage: 1.5 MG, QD (AT BEDTIME)
     Route: 065
     Dates: start: 20220813
  7. TRAMADOL [Suspect]
     Active Substance: TRAMADOL
     Indication: Product used for unknown indication
     Dosage: UNK
     Route: 065
  8. ACETAMINOPHEN\CODEINE PHOSPHATE [Suspect]
     Active Substance: ACETAMINOPHEN\CODEINE PHOSPHATE
     Indication: Headache
     Dosage: UNSPECIFIED
     Route: 048
     Dates: start: 20220806
  9. IXPRIM [Suspect]
     Active Substance: ACETAMINOPHEN\TRAMADOL HYDROCHLORIDE
     Indication: Headache
     Dosage: UNK, 37.5/325 MG
     Route: 048
     Dates: start: 20220813, end: 20220824
  10. IXPRIM [Suspect]
     Active Substance: ACETAMINOPHEN\TRAMADOL HYDROCHLORIDE
     Dosage: UNK, PRN (400 MG/20 MG)
     Route: 048
     Dates: start: 20220806, end: 20220824
  11. IXPRIM [Suspect]
     Active Substance: ACETAMINOPHEN\TRAMADOL HYDROCHLORIDE
     Dosage: 1 GRAM (MORNING, NOON AND EVENING)
     Route: 065
     Dates: start: 20220813, end: 20220824
  12. ZOPICLONE [Concomitant]
     Active Substance: ZOPICLONE
     Indication: Product used for unknown indication
     Dosage: 7.5 MG (AT NIGHT)
     Route: 048
  13. ESOMEPRAZOLE [Concomitant]
     Active Substance: ESOMEPRAZOLE
     Indication: Product used for unknown indication
     Dosage: 20 MG (AT NIGHT)
     Route: 048
  14. NAPROXEN [Concomitant]
     Active Substance: NAPROXEN
     Indication: Product used for unknown indication
     Dosage: UNK
     Route: 048
  15. KARDEGIC [Concomitant]
     Active Substance: ASPIRIN DL-LYSINE
     Indication: Product used for unknown indication
     Dosage: 75 MG (AT LUNCHTIME)
     Route: 065
  16. BROMAZEPAM [Concomitant]
     Active Substance: BROMAZEPAM
     Dosage: UNK
     Route: 065
  17. LEVOTHYROXINE SODIUM [Concomitant]
     Active Substance: LEVOTHYROXINE SODIUM
     Indication: Product used for unknown indication
     Dosage: 75 MICROGRAM, QD
     Route: 065

REACTIONS (3)
  - Akathisia [Recovering/Resolving]
  - Confusional state [Recovering/Resolving]
  - Product use in unapproved indication [Recovered/Resolved]

NARRATIVE: CASE EVENT DATE: 20220813
